FAERS Safety Report 6392276-9 (Version None)
Quarter: 2009Q4

REPORT INFORMATION
  Report Type: 
  Country: None (occurrence: None)
  Receive Date: 20091007
  Receipt Date: 20090930
  Transmission Date: 20100525
  Serious: Yes (Other)
  Sender: FDA-Public Use
  Company Number: US-PFIZER INC-2009277554

PATIENT
  Sex: Male
  Weight: 86.621 kg

DRUGS (11)
  1. LIPITOR [Suspect]
     Indication: BLOOD CHOLESTEROL INCREASED
     Dosage: 20 MG, 1X/DAY
     Dates: start: 20060101, end: 20090601
  2. LIPITOR [Suspect]
     Dosage: 20 MG, 1X/DAY
     Dates: start: 20090921, end: 20090925
  3. NEXIUM [Concomitant]
     Indication: GASTROOESOPHAGEAL REFLUX DISEASE
     Dosage: UNK
  4. NEXIUM [Concomitant]
     Indication: HIATUS HERNIA
  5. DICLOFENAC SODIUM [Concomitant]
     Indication: ARTHRITIS
     Dosage: UNK
  6. ACETYLSALICYLIC ACID [Concomitant]
     Dosage: 81 MG, 1X/DAY
  7. MULTI-VITAMINS [Concomitant]
     Dates: end: 20090601
  8. NIASPAN [Concomitant]
     Dates: end: 20090601
  9. COQ10 [Concomitant]
     Dates: end: 20090901
  10. RESVERATROL [Concomitant]
     Dates: end: 20090601
  11. LEVITRA [Concomitant]
     Dosage: UNK, ALTERNATE DAY

REACTIONS (4)
  - ECZEMA [None]
  - PROSTATE CANCER [None]
  - URTICARIA [None]
  - WEIGHT DECREASED [None]
